FAERS Safety Report 7681203-X (Version None)
Quarter: 2011Q3

REPORT INFORMATION
  Report Type: 
  Country: None (occurrence: None)
  Receive Date: 20110812
  Receipt Date: 20110802
  Transmission Date: 20111222
  Serious: Yes (Hospitalization)
  Sender: FDA-Public Use
  Company Number: US-ELI_LILLY_AND_COMPANY-US201108002456

PATIENT
  Sex: Female

DRUGS (2)
  1. HUMULIN R [Suspect]
     Indication: TYPE 2 DIABETES MELLITUS
     Dosage: 20 U AM, 10 U PM
     Route: 065
     Dates: start: 20100801, end: 20110501
  2. HUMULIN R [Suspect]
     Dosage: 10U AM, 6 U PM
     Route: 065
     Dates: start: 20110501

REACTIONS (6)
  - MEMORY IMPAIRMENT [None]
  - CARDIAC DISORDER [None]
  - LIP SWELLING [None]
  - GLIOBLASTOMA MULTIFORME [None]
  - DYSARTHRIA [None]
  - VIITH NERVE PARALYSIS [None]
